FAERS Safety Report 5492461-4 (Version None)
Quarter: 2007Q4

REPORT INFORMATION
  Report Type: 
  Country: None (occurrence: None)
  Receive Date: 20071015
  Receipt Date: 20070730
  Transmission Date: 20080405
  Serious: No
  Sender: FDA-Public Use
  Company Number: 2007SP002692

PATIENT
  Sex: Female
  Weight: 55.3388 kg

DRUGS (3)
  1. LUNESTA [Suspect]
     Indication: INSOMNIA
     Dosage: 3 MG HS ORAL
     Route: 048
     Dates: start: 20070628, end: 20070730
  2. ORAL CONTRACEPTIVE NOS [Concomitant]
  3. VITAMINS [Concomitant]

REACTIONS (3)
  - ABNORMAL DREAMS [None]
  - ALOPECIA [None]
  - REBOUND EFFECT [None]
